FAERS Safety Report 7611532-7 (Version None)
Quarter: 2011Q3

REPORT INFORMATION
  Report Type: 
  Country: None (occurrence: None)
  Receive Date: 20110715
  Receipt Date: 20110707
  Transmission Date: 20111222
  Serious: Yes (Hospitalization)
  Sender: FDA-Public Use
  Company Number: US-BAXTER-2011BH020913

PATIENT
  Age: 84 Year
  Sex: Male

DRUGS (1)
  1. DIANEAL [Suspect]
     Indication: PERITONEAL DIALYSIS
     Route: 033
     Dates: start: 20090601

REACTIONS (5)
  - GASTROENTERITIS VIRAL [None]
  - BRONCHITIS [None]
  - CONDITION AGGRAVATED [None]
  - SEPSIS [None]
  - ATRIAL FIBRILLATION [None]
